FAERS Safety Report 4411957-7 (Version None)
Quarter: 2004Q3

REPORT INFORMATION
  Report Type: 
  Country: None (occurrence: None)
  Receive Date: 20040730
  Receipt Date: 20031202
  Transmission Date: 20050211
  Serious: Yes (Hospitalization)
  Sender: FDA-Public Use
  Company Number: PHHO2003BE15473

PATIENT
  Age: 53 Year
  Sex: Female

DRUGS (5)
  1. ZOL 446 [Suspect]
     Dosage: 4 MG
     Route: 042
     Dates: start: 20031112
  2. STEOVIT D3 [Concomitant]
     Dates: start: 20031105
  3. CO-DAFALGAN [Concomitant]
  4. ZOLPIDEM TARTRATE [Concomitant]
  5. MACROGOL [Concomitant]

REACTIONS (10)
  - ANOREXIA [None]
  - ASTHENIA [None]
  - CONSTIPATION [None]
  - GENERAL PHYSICAL HEALTH DETERIORATION [None]
  - HYPOTENSION [None]
  - INFLUENZA LIKE ILLNESS [None]
  - MALIGNANT NEOPLASM PROGRESSION [None]
  - PAIN [None]
  - PYREXIA [None]
  - SYNCOPE [None]
